FAERS Safety Report 6685211-7 (Version None)
Quarter: 2010Q2

REPORT INFORMATION
  Report Type: 
  Country: None (occurrence: None)
  Receive Date: 20100416
  Receipt Date: 20100409
  Transmission Date: 20101027
  Serious: Yes (Hospitalization)
  Sender: FDA-Public Use
  Company Number: GB-AMGEN-QUU404538

PATIENT
  Age: 62 Year
  Sex: Female
  Weight: 93.6 kg

DRUGS (8)
  1. NEULASTA [Suspect]
     Indication: CHEMOTHERAPY
     Route: 058
     Dates: start: 20100310
  2. ASPIRIN [Concomitant]
  3. CYCLOPHOSPHAMIDE [Concomitant]
  4. DEXAMETHASONE [Concomitant]
  5. EPIRUBICIN [Concomitant]
  6. FLUOROURACIL [Concomitant]
  7. METOCLOPRAMIDE HYDROCHLORIDE [Concomitant]
  8. ONDANSETRON [Concomitant]

REACTIONS (2)
  - ISCHAEMIA [None]
  - PERIPHERAL EMBOLISM [None]
